FAERS Safety Report 9258007 (Version 1)
Quarter: 2013Q1

REPORT INFORMATION
  Report Type: Spontaneous
  Country: US (occurrence: None)
  Receive Date: 20121212
  Receipt Date: 20121212
  Transmission Date: 20140127
  Serious: No
  Sender: FDA-Public Use
  Company Number: 1208USA007631

PATIENT
  Age: 63 Year
  Sex: Male

DRUGS (3)
  1. PEG-INTRON [Suspect]
     Indication: HEPATITIS C
     Dates: start: 20110916, end: 20120817
  2. REBETOL (RIBAVIRIN) [Suspect]
     Indication: HEPATITIS C
     Dates: start: 20110916, end: 20120817
  3. VICTRELIS [Suspect]
     Indication: HEPATITIS C
     Dates: start: 20111015, end: 20120817

REACTIONS (2)
  - Red blood cell count decreased [None]
  - Drug dose omission [None]
